FAERS Safety Report 15629136 (Version 2)
Quarter: 2018Q4

REPORT INFORMATION
  Report Type: Spontaneous
  Country: GB (occurrence: GB)
  Receive Date: 20181116
  Receipt Date: 20181126
  Transmission Date: 20190205
  Serious: Yes (Other)
  Sender: FDA-Public Use
  Company Number: GB-009507513-1811GBR005095

PATIENT
  Age: 12 Year
  Sex: Male
  Weight: 53 kg

DRUGS (1)
  1. MONTELUKAST SODIUM. [Suspect]
     Active Substance: MONTELUKAST SODIUM
     Indication: ASTHMA
     Dosage: 5 MILLIGRAM, QD
     Route: 048
     Dates: start: 20180401, end: 20181012

REACTIONS (11)
  - Dizziness [Recovered/Resolved]
  - Suicidal ideation [Recovered/Resolved with Sequelae]
  - Tearfulness [Unknown]
  - Diarrhoea [Recovered/Resolved]
  - Decreased interest [Unknown]
  - Fatigue [Recovered/Resolved]
  - Agitation [Recovering/Resolving]
  - Nausea [Recovered/Resolved]
  - Fatigue [Unknown]
  - Abdominal pain upper [Recovered/Resolved with Sequelae]
  - Pruritus generalised [Recovered/Resolved]

NARRATIVE: CASE EVENT DATE: 20180601
